FAERS Safety Report 16267725 (Version 2)
Quarter: 2019Q2

REPORT INFORMATION
  Report Type: Spontaneous
  Country: US (occurrence: US)
  Receive Date: 20190503
  Receipt Date: 20190612
  Transmission Date: 20190711
  Serious: No
  Sender: FDA-Public Use
  Company Number: US-ASTRAZENECA-2019SE54012

PATIENT
  Age: 76 Year
  Sex: Female
  Weight: 64.8 kg

DRUGS (1)
  1. FASLODEX [Suspect]
     Active Substance: FULVESTRANT
     Indication: BRCA1 GENE MUTATION
     Dosage: 500.0MG UNKNOWN
     Route: 030
     Dates: start: 20130221, end: 20190305

REACTIONS (1)
  - Atrial fibrillation [Unknown]
